FAERS Safety Report 10028411 (Version 1)
Quarter: 2014Q1

REPORT INFORMATION
  Report Type: Spontaneous
  Country: US (occurrence: US)
  Receive Date: 20140321
  Receipt Date: 20140321
  Transmission Date: 20141002
  Serious: No
  Sender: FDA-Public Use
  Company Number: US-009507513-1402USA013716

PATIENT
  Age: 91 Year
  Sex: Female

DRUGS (1)
  1. CORICIDIN HBP CHEST CONGESTION AND COUGH [Suspect]
     Indication: PRODUCT USED FOR UNKNOWN INDICATION
     Dosage: 3 DF, Q4H
     Route: 048

REACTIONS (4)
  - Dizziness [Unknown]
  - Diarrhoea [Unknown]
  - Inappropriate schedule of drug administration [Unknown]
  - Overdose [Unknown]
